FAERS Safety Report 4633250-X (Version None)
Quarter: 2005Q2

REPORT INFORMATION
  Report Type: 
  Country: None (occurrence: None)
  Receive Date: 20050408
  Receipt Date: 20050310
  Transmission Date: 20051028
  Serious: Yes (Other)
  Sender: FDA-Public Use
  Company Number: USA-2005-0019650

PATIENT
  Age: 27 Year
  Sex: Female

DRUGS (3)
  1. OXYCODONE HCL [Suspect]
     Indication: PAIN
     Dosage: 5 MG, BID,
     Dates: start: 20050101
  2. LAMICTAL [Suspect]
     Dosage: 205 MG, DAILY,
  3. PARACETAMOL [Concomitant]

REACTIONS (6)
  - DRUG EFFECT DECREASED [None]
  - DRUG INTERACTION [None]
  - DRUG LEVEL DECREASED [None]
  - GAIT DISTURBANCE [None]
  - GRAND MAL CONVULSION [None]
  - SPEECH DISORDER [None]
